FAERS Safety Report 9285659 (Version 1)
Quarter: 2013Q2

REPORT INFORMATION
  Report Type: Spontaneous
  Country: US (occurrence: None)
  Receive Date: 20130510
  Receipt Date: 20130510
  Transmission Date: 20140414
  Serious: No
  Sender: FDA-Public Use
  Company Number: None

PATIENT
  Age: 30 Year
  Sex: Female

DRUGS (1)
  1. BUSPIRONE [Suspect]
     Indication: DEPRESSION
     Dosage: 4 TABS BIO
     Route: 048
     Dates: start: 20100311

REACTIONS (2)
  - Drug ineffective [None]
  - Product substitution issue [None]
